FAERS Safety Report 20615024 (Version 2)
Quarter: 2022Q2

REPORT INFORMATION
  Report Type: Spontaneous
  Country: US (occurrence: US)
  Receive Date: 20220321
  Receipt Date: 20220405
  Transmission Date: 20220720
  Serious: Yes (Other)
  Sender: FDA-Public Use
  Company Number: US-SANOFI-01013021

PATIENT

DRUGS (1)
  1. ALLEGRA ALLERGY [Suspect]
     Active Substance: FEXOFENADINE HYDROCHLORIDE
     Indication: Multiple allergies
     Dosage: UNK

REACTIONS (42)
  - Mental impairment [Unknown]
  - Psychiatric symptom [Unknown]
  - Near death experience [Unknown]
  - Nasal congestion [Not Recovered/Not Resolved]
  - Lacrimation increased [Not Recovered/Not Resolved]
  - Rhinorrhoea [Not Recovered/Not Resolved]
  - Sneezing [Not Recovered/Not Resolved]
  - Cough [Not Recovered/Not Resolved]
  - Anxiety [Unknown]
  - Chills [Unknown]
  - Nasopharyngitis [Unknown]
  - Back pain [Unknown]
  - Pain [Unknown]
  - Abdominal pain upper [Unknown]
  - Retching [Unknown]
  - Pain in extremity [Unknown]
  - Oropharyngeal pain [Unknown]
  - Dysphagia [Unknown]
  - Decreased appetite [Unknown]
  - Amnesia [Unknown]
  - Ear pain [Unknown]
  - Agitation [Unknown]
  - Irritability [Unknown]
  - Tremor [Unknown]
  - Muscle twitching [Unknown]
  - Cognitive disorder [Unknown]
  - Bladder discomfort [Unknown]
  - Throat tightness [Unknown]
  - Pain in extremity [Unknown]
  - Asthenia [Unknown]
  - Sinus disorder [Unknown]
  - Emotional disorder [Unknown]
  - Emotional distress [Unknown]
  - Dizziness [Unknown]
  - Nervousness [Unknown]
  - Headache [Unknown]
  - Nausea [Unknown]
  - Fatigue [Unknown]
  - Insomnia [Unknown]
  - Sleep disorder [Unknown]
  - Drug ineffective [Unknown]
  - Hypersensitivity [Unknown]
